FAERS Safety Report 11269894 (Version 2)
Quarter: 2015Q3

REPORT INFORMATION
  Report Type: Spontaneous
  Country: US (occurrence: US)
  Receive Date: 20150714
  Receipt Date: 20150721
  Transmission Date: 20151125
  Serious: No
  Sender: FDA-Public Use
  Company Number: US-BIOGENIDEC-2015BI095653

PATIENT
  Age: 32 Year
  Sex: Male
  Weight: 81 kg

DRUGS (6)
  1. AMPYRA [Concomitant]
     Active Substance: DALFAMPRIDINE
     Indication: GAIT DISTURBANCE
     Route: 048
     Dates: start: 20141222
  2. MODAFINIL. [Concomitant]
     Active Substance: MODAFINIL
  3. TYSABRI [Concomitant]
     Active Substance: NATALIZUMAB
  4. VITAMIN D [Concomitant]
     Active Substance: CHOLECALCIFEROL
  5. TECFIDERA [Suspect]
     Active Substance: DIMETHYL FUMARATE
     Indication: MULTIPLE SCLEROSIS
     Route: 048
     Dates: start: 201309
  6. MULTIVITAMIN [Concomitant]
     Active Substance: VITAMINS

REACTIONS (4)
  - Adverse event [Unknown]
  - Inappropriate schedule of drug administration [Unknown]
  - Flushing [Recovered/Resolved]
  - Abdominal discomfort [Recovered/Resolved]

NARRATIVE: CASE EVENT DATE: 201309
